FAERS Safety Report 4535353-7 (Version None)
Quarter: 2004Q4

REPORT INFORMATION
  Report Type: 
  Country: None (occurrence: None)
  Receive Date: 20041222
  Receipt Date: 20041216
  Transmission Date: 20050328
  Serious: Yes (Hospitalization)
  Sender: FDA-Public Use
  Company Number: US-BRISTOL-MYERS SQUIBB COMPANY-12798096

PATIENT
  Age: 59 Year
  Sex: Female
  Weight: 46 kg

DRUGS (14)
  1. ERBITUX [Suspect]
     Indication: COLON CANCER METASTATIC
     Route: 042
     Dates: start: 20041130, end: 20041130
  2. ALOXI [Concomitant]
     Indication: PREMEDICATION
     Route: 042
     Dates: start: 20041130, end: 20041130
  3. BENADRYL [Concomitant]
     Indication: PREMEDICATION
     Route: 042
     Dates: start: 20041130, end: 20041130
  4. DEXAMETHASONE [Concomitant]
     Indication: PREMEDICATION
     Route: 042
     Dates: start: 20041130, end: 20041130
  5. IRINOTECAN [Concomitant]
     Dates: start: 20041130, end: 20041130
  6. ATIVAN [Concomitant]
  7. ATROVENT [Concomitant]
     Route: 055
  8. DUONEB [Concomitant]
  9. FLOVENT [Concomitant]
     Route: 055
  10. IMODIUM [Concomitant]
  11. NEXIUM [Concomitant]
  12. PAXIL [Concomitant]
  13. PREDNISONE [Concomitant]
  14. XANAX [Concomitant]

REACTIONS (2)
  - DYSPNOEA [None]
  - PULMONARY TOXICITY [None]
